FAERS Safety Report 13024392 (Version 2)
Quarter: 2017Q1

REPORT INFORMATION
  Report Type: Report from Study
  Country: US (occurrence: US)
  Receive Date: 20161213
  Receipt Date: 20170103
  Transmission Date: 20170428
  Serious: Yes (Death)
  Sender: FDA-Public Use
  Company Number: US-ACTELION-A-NJ2016-146772

PATIENT
  Age: 89 Year
  Sex: Female

DRUGS (1)
  1. OPSUMIT [Suspect]
     Active Substance: MACITENTAN
     Indication: PULMONARY HYPERTENSION
     Dosage: 10 MG, QD
     Route: 048
     Dates: start: 20140923, end: 20161103

REACTIONS (2)
  - Pneumonia staphylococcal [Fatal]
  - Asthenia [Unknown]

NARRATIVE: CASE EVENT DATE: 20161103
